FAERS Safety Report 7138612-7 (Version None)
Quarter: 2010Q4

REPORT INFORMATION
  Report Type: 
  Country: None (occurrence: None)
  Receive Date: 20101109
  Receipt Date: 20101025
  Transmission Date: 20110411
  Serious: Yes (Other)
  Sender: FDA-Public Use
  Company Number: GAM-310-10-AU

PATIENT
  Age: 78 Year
  Sex: Male

DRUGS (4)
  1. OCTAGAM [Suspect]
     Indication: CHRONIC INFLAMMATORY DEMYELINATING POLYRADICULONEUROPATHY
     Dosage: 32.5 G I.V.
     Route: 042
     Dates: start: 20100101, end: 20100101
  2. PERINDOPRIL ERBUMINE [Concomitant]
  3. ASPIRIN [Concomitant]
  4. VOLTAREN [Concomitant]

REACTIONS (1)
  - RETINAL VASCULAR THROMBOSIS [None]
